FAERS Safety Report 7544359-5 (Version None)
Quarter: 2011Q2

REPORT INFORMATION
  Report Type: 
  Country: None (occurrence: None)
  Receive Date: 20110613
  Receipt Date: 20080227
  Transmission Date: 20111010
  Serious: Yes (Hospitalization)
  Sender: FDA-Public Use
  Company Number: PHFR2008IE00528

PATIENT
  Sex: Female

DRUGS (6)
  1. VALPROATE SODIUM [Concomitant]
     Dosage: 200 MG/DAY
     Route: 048
  2. CLOZAPINE [Suspect]
     Indication: SCHIZOPHRENIA
     Dosage: 175 MG DAILY
     Route: 048
     Dates: start: 20060103
  3. LAMOTRIGINE [Concomitant]
     Dosage: 200 MG/DAY
     Route: 048
  4. CAPTOPRIL [Concomitant]
     Dosage: 25 MG,/DAY
     Route: 048
  5. SERETIDE ^ALLEN + HANBURYS LTD^ [Concomitant]
     Dosage: 2 PUFFS /DAY
  6. OMEPRAZOLE [Concomitant]
     Dosage: 20 MG/DAY
     Route: 048

REACTIONS (3)
  - RED BLOOD CELL SEDIMENTATION RATE INCREASED [None]
  - BODY TEMPERATURE INCREASED [None]
  - RESPIRATORY TRACT INFECTION [None]
